FAERS Safety Report 15473041 (Version 3)
Quarter: 2018Q4

REPORT INFORMATION
  Report Type: Spontaneous
  Country: PT (occurrence: PT)
  Receive Date: 20181008
  Receipt Date: 20181010
  Transmission Date: 20190205
  Serious: Yes (Other)
  Sender: FDA-Public Use
  Company Number: PT-MYLANLABS-2018M1073026

PATIENT
  Sex: Female

DRUGS (1)
  1. LEVONORGESTREL. [Suspect]
     Active Substance: LEVONORGESTREL
     Indication: CONTRACEPTION
     Dosage: 52 MG, ONCE (52 MG, SINGLE, AT AN INITIAL RELEASE RATE OF 20 MICROGRAM PER 24 HOURS)
     Route: 015

REACTIONS (2)
  - Uterine perforation [Unknown]
  - Device dislocation [Unknown]
